FAERS Safety Report 9531376 (Version 1)
Quarter: 2013Q2

REPORT INFORMATION
  Report Type: Spontaneous
  Country: US (occurrence: None)
  Receive Date: 20130507
  Receipt Date: 20130507
  Transmission Date: 20140414
  Serious: Yes (Death, Hospitalization)
  Sender: FDA-Public Use
  Company Number: PHEH2013US001815

PATIENT
  Age: 71 Year
  Sex: Female
  Weight: 45.5 kg

DRUGS (2)
  1. AFINITOR [Suspect]
     Indication: BREAST CANCER METASTATIC
     Route: 048
     Dates: start: 20120824, end: 20120903
  2. EXEMESTANE (EXEMESTANE) [Concomitant]

REACTIONS (6)
  - Breast cancer metastatic [None]
  - Malignant neoplasm progression [None]
  - Nausea [None]
  - Vomiting [None]
  - Abdominal pain [None]
  - Ascites [None]
